FAERS Safety Report 10794846 (Version 1)
Quarter: 2015Q1

REPORT INFORMATION
  Report Type: Spontaneous
  Country: US (occurrence: US)
  Receive Date: 20150213
  Receipt Date: 20150213
  Transmission Date: 20150721
  Serious: Yes (Hospitalization)
  Sender: FDA-Public Use
  Company Number: US-CELGENEUS-USA-2015020742

PATIENT
  Age: 66 Year
  Sex: Female

DRUGS (2)
  1. THALOMID [Suspect]
     Active Substance: THALIDOMIDE
     Indication: CUTANEOUS LUPUS ERYTHEMATOSUS
     Route: 065
     Dates: start: 201110, end: 2011
  2. THALOMID [Suspect]
     Active Substance: THALIDOMIDE
     Route: 065
     Dates: start: 201111

REACTIONS (2)
  - Abdominal wall haematoma [Unknown]
  - Bronchitis [Unknown]

NARRATIVE: CASE EVENT DATE: 20150115
